FAERS Safety Report 22146151 (Version 1)
Quarter: 2023Q1

REPORT INFORMATION
  Report Type: Spontaneous
  Country: US (occurrence: US)
  Receive Date: 20230328
  Receipt Date: 20230328
  Transmission Date: 20230418
  Serious: Yes (Hospitalization, Other)
  Sender: FDA-Public Use
  Company Number: US-CIPLA LTD.-2023US01643

PATIENT

DRUGS (1)
  1. BUPROPION [Suspect]
     Active Substance: BUPROPION
     Dosage: UNK
     Route: 048

REACTIONS (11)
  - Lactic acidosis [Unknown]
  - Rhinovirus infection [Unknown]
  - Enterovirus infection [Unknown]
  - Electrocardiogram QT prolonged [Unknown]
  - Irritability [Unknown]
  - Seizure [Recovered/Resolved]
  - Dyskinesia [Unknown]
  - Tremor [Unknown]
  - Tachycardia [Unknown]
  - False positive investigation result [Unknown]
  - Accidental exposure to product [Unknown]
